FAERS Safety Report 7118641-X (Version None)
Quarter: 2010Q4

REPORT INFORMATION
  Report Type: 
  Country: None (occurrence: None)
  Receive Date: 20101027
  Receipt Date: 20100311
  Transmission Date: 20110411
  Serious: Yes (Other)
  Sender: FDA-Public Use
  Company Number: US-WYE-H14057410

PATIENT
  Age: 92 Year
  Sex: Female
  Weight: 54.93 kg

DRUGS (8)
  1. PREMARIN [Suspect]
     Indication: ATROPHIC VULVOVAGINITIS
     Dosage: 0.5 G 2X PER 1 WK, VAGINAL
     Route: 067
     Dates: start: 20100222
  2. ATACAND [Concomitant]
  3. MULTIVIT (VITAMINS NOS) [Concomitant]
  4. ASPIRIN [Concomitant]
  5. ALENDRONATE SODIUM [Concomitant]
  6. TROSPIUM CHLORIDE [Concomitant]
  7. CALCIUM (CALCIUM) [Concomitant]
  8. BACTRIM [Concomitant]

REACTIONS (4)
  - CONDITION AGGRAVATED [None]
  - CONFUSIONAL STATE [None]
  - HEARING IMPAIRED [None]
  - TREMOR [None]
